FAERS Safety Report 20663109 (Version 1)
Quarter: 2022Q2

REPORT INFORMATION
  Report Type: Report from Study
  Country: EG (occurrence: EG)
  Receive Date: 20220401
  Receipt Date: 20220401
  Transmission Date: 20220721
  Serious: Yes (Other)
  Sender: FDA-Public Use
  Company Number: EG-NOVARTISPH-NVSC2022EG073597

PATIENT
  Age: 60 Year
  Sex: Female

DRUGS (3)
  1. KISQALI [Suspect]
     Active Substance: RIBOCICLIB
     Indication: Breast cancer metastatic
     Dosage: 3 DOSAGE FORM, QD
     Route: 065
  2. KISQALI [Suspect]
     Active Substance: RIBOCICLIB
     Dosage: 2 DOSAGE FORM, QD (3 WEEKS ON AND ONE WEEK OFF)
     Route: 048
     Dates: start: 202109, end: 202201
  3. ARIMIDEX [Concomitant]
     Active Substance: ANASTROZOLE
     Indication: Chemotherapy
     Dosage: UNK
     Route: 065
     Dates: end: 202201

REACTIONS (2)
  - White blood cell count decreased [Recovered/Resolved]
  - Metastases to bone [Unknown]

NARRATIVE: CASE EVENT DATE: 20211201
